FAERS Safety Report 25216779 (Version 1)
Quarter: 2025Q2

REPORT INFORMATION
  Report Type: Spontaneous
  Country: US (occurrence: US)
  Receive Date: 20250419
  Receipt Date: 20250419
  Transmission Date: 20250717
  Serious: No
  Sender: SANDOZ
  Company Number: US-SANDOZ-SDZ2025US023966

PATIENT
  Age: 53 Year
  Sex: Female

DRUGS (1)
  1. ESTRADIOL [Suspect]
     Active Substance: ESTRADIOL
     Indication: Product used for unknown indication
     Dosage: 0.05 MG / 1 10, (1 X WEEKLY)
     Route: 065

REACTIONS (2)
  - Rash erythematous [Unknown]
  - Rash pruritic [Unknown]
